FAERS Safety Report 8190895-0 (Version None)
Quarter: 2012Q1

REPORT INFORMATION
  Report Type: 
  Country: None (occurrence: None)
  Receive Date: 20120305
  Receipt Date: 20120223
  Transmission Date: 20120608
  Serious: Yes (Hospitalization)
  Sender: FDA-Public Use
  Company Number: 2012SP010343

PATIENT
  Age: 66 Year
  Sex: Male
  Weight: 62 kg

DRUGS (7)
  1. REBETOL	(RIBAVIRIN /00816701/) [Concomitant]
     Indication: PRODUCT USED FOR UNKNOWN INDICATION
     Dosage: 800 MG;QD;PO, 400 MG;QD;PO, 200 MG;QD;PO
     Route: 048
     Dates: start: 20120201
  2. REBETOL	(RIBAVIRIN /00816701/) [Concomitant]
     Indication: PRODUCT USED FOR UNKNOWN INDICATION
     Dosage: 800 MG;QD;PO, 400 MG;QD;PO, 200 MG;QD;PO
     Route: 048
     Dates: start: 20120215
  3. TELAVIC (TELAPREVIR) (INVESTIGATIONAL DRUG) [Suspect]
     Indication: PRODUCT USED FOR UNKNOWN INDICATION
     Dosage: 2250 MG;QD;PO,1500 MG;QD;PO
     Route: 048
     Dates: start: 20120111
  4. TELAVIC (TELAPREVIR) (INVESTIGATIONAL DRUG) [Suspect]
     Indication: PRODUCT USED FOR UNKNOWN INDICATION
     Dosage: 2250 MG;QD;PO,1500 MG;QD;PO
     Route: 048
     Dates: start: 20120215
  5. PEGINTERFERON ALFA-2B [Suspect]
     Indication: PRODUCT USED FOR UNKNOWN INDICATION
     Dosage: 1.5 MCG/KG;QW;SC
     Route: 058
  6. RIBAVIRIN [Concomitant]
  7. INTERFERON [Concomitant]

REACTIONS (2)
  - HAEMOGLOBIN DECREASED [None]
  - PROSTATITIS [None]
